FAERS Safety Report 8817408 (Version 1)
Quarter: 2012Q4

REPORT INFORMATION
  Report Type: 
  Country: AT (occurrence: AT)
  Receive Date: 20121004
  Receipt Date: 20121004
  Transmission Date: 20130627
  Serious: No
  Sender: FDA-Public Use
  Company Number: AT-B.I. PHARMACEUTICALS,INC./RIDGEFIELD-2012-AP-00803AP

PATIENT
  Age: 73 Year
  Sex: Female

DRUGS (1)
  1. TRAJENTA [Suspect]
     Indication: TYPE 2 DIABETES MELLITUS
     Dosage: 1 anz
     Route: 048
     Dates: start: 201204

REACTIONS (3)
  - Conjunctivitis [Unknown]
  - Rhinitis [Unknown]
  - Pharyngitis [Unknown]
